FAERS Safety Report 6708646-2 (Version None)
Quarter: 2010Q2

REPORT INFORMATION
  Report Type: 
  Country: None (occurrence: None)
  Receive Date: 20100503
  Receipt Date: 20100429
  Transmission Date: 20101027
  Serious: Yes (Hospitalization)
  Sender: FDA-Public Use
  Company Number: IT-ROCHE-666680

PATIENT
  Sex: Female
  Weight: 42.3 kg

DRUGS (11)
  1. METHOXY POLYETHYLENE GLYCOL-EPOETIN BETA [Suspect]
     Route: 058
     Dates: start: 20090129
  2. METHOXY POLYETHYLENE GLYCOL-EPOETIN BETA [Suspect]
     Dosage: TEMPORARILY INTERRUPTED ON 20 OCTOBER 2009 FORM: PFS. LAST DOSE PRIOR TO SAE: 29 AUG 2009
     Route: 058
     Dates: start: 20090729, end: 20091020
  3. TAPAZOLE [Concomitant]
     Dates: start: 20020718
  4. LASIX [Concomitant]
     Dates: start: 20091026
  5. ISOPTIN [Concomitant]
     Dates: start: 20091026
  6. CLEXANE [Concomitant]
     Dates: start: 20091026
  7. TAVANIC [Concomitant]
     Dates: start: 20091026
  8. LANSOX [Concomitant]
     Dates: start: 20081224, end: 20091025
  9. LANSOX [Concomitant]
     Dates: start: 20091026
  10. PROPAFENONE HCL [Concomitant]
     Dates: start: 20020718, end: 20091025
  11. DIURESIX [Concomitant]
     Dates: start: 20040611, end: 20091025

REACTIONS (4)
  - ATRIAL FIBRILLATION [None]
  - CARDIAC FAILURE CONGESTIVE [None]
  - DYSPNOEA [None]
  - SKIN LESION [None]
